FAERS Safety Report 8006288-2 (Version None)
Quarter: 2011Q4

REPORT INFORMATION
  Report Type: 
  Country: None (occurrence: None)
  Receive Date: 20111226
  Receipt Date: 20111213
  Transmission Date: 20120403
  Serious: Yes (Hospitalization, Other)
  Sender: FDA-Public Use
  Company Number: BR-BAYER-2011-119661

PATIENT
  Sex: Female
  Weight: 60 kg

DRUGS (3)
  1. YASMIN [Suspect]
     Indication: SWELLING
  2. ESTRADIOL VALERATE/DIENOGEST [Suspect]
     Indication: CONTRACEPTION
     Dosage: UNK
     Route: 048
     Dates: start: 20111101, end: 20111202
  3. YASMIN [Suspect]
     Indication: ACNE
     Dosage: UNK
     Route: 048
     Dates: start: 20040101, end: 20070101

REACTIONS (8)
  - DYSKINESIA [None]
  - CENTRAL NERVOUS SYSTEM INFLAMMATION [None]
  - LOSS OF LIBIDO [None]
  - MENSTRUATION DELAYED [None]
  - TREMOR [None]
  - CANDIDIASIS [None]
  - HEADACHE [None]
  - VULVOVAGINAL DRYNESS [None]
